FAERS Safety Report 7425999-0 (Version None)
Quarter: 2011Q2

REPORT INFORMATION
  Report Type: 
  Country: None (occurrence: None)
  Receive Date: 20110420
  Receipt Date: 20110414
  Transmission Date: 20111010
  Serious: Yes (Other)
  Sender: FDA-Public Use
  Company Number: US-PURDUE-USA-2010-0049865

PATIENT
  Age: 74 Year
  Sex: Male
  Weight: 104.31 kg

DRUGS (5)
  1. SOMA [Concomitant]
     Indication: PRODUCT USED FOR UNKNOWN INDICATION
     Dosage: 350 MG, UNK
  2. METFORMIN [Concomitant]
     Indication: PRODUCT USED FOR UNKNOWN INDICATION
  3. PERCOCET [Concomitant]
     Indication: BREAKTHROUGH PAIN
     Route: 048
  4. ACTOS [Concomitant]
     Indication: PRODUCT USED FOR UNKNOWN INDICATION
  5. OXYCONTIN (NDA 22-272) [Suspect]
     Indication: CANCER PAIN
     Dosage: 80 MG, QID
     Route: 048
     Dates: start: 20100801

REACTIONS (7)
  - SWELLING [None]
  - DRUG EFFECT DECREASED [None]
  - PRURITUS GENERALISED [None]
  - URTICARIA [None]
  - DIARRHOEA [None]
  - REACTION TO DRUG EXCIPIENTS [None]
  - CARDIAC FAILURE CONGESTIVE [None]
